FAERS Safety Report 23790164 (Version 1)
Quarter: 2024Q2

REPORT INFORMATION
  Report Type: Spontaneous
  Country: US (occurrence: None)
  Receive Date: 20240426
  Receipt Date: 20240426
  Transmission Date: 20240716
  Serious: Yes (Death)
  Sender: FDA-Public Use
  Company Number: US-ROCHE-3552725

PATIENT
  Age: 64 Year
  Sex: Female

DRUGS (3)
  1. ALECENSA [Suspect]
     Active Substance: ALECTINIB HYDROCHLORIDE
     Indication: Lung neoplasm malignant
     Route: 048
     Dates: start: 202404
  2. XALKORI [Concomitant]
     Active Substance: CRIZOTINIB
     Route: 048
  3. TAGRISSO [Concomitant]
     Active Substance: OSIMERTINIB
     Dosage: TAKE 1 TABLET 80 MG BY MOUTH EVERY OTHER DAY ALTERNATING WITH 40 MG TABLET
     Route: 048

REACTIONS (1)
  - Death [Fatal]

NARRATIVE: CASE EVENT DATE: 20240421
